FAERS Safety Report 9656337 (Version 1)
Quarter: 2013Q4

REPORT INFORMATION
  Report Type: Spontaneous
  Country: US (occurrence: US)
  Receive Date: 20131030
  Receipt Date: 20131030
  Transmission Date: 20140711
  Serious: No
  Sender: FDA-Public Use
  Company Number: US-PFIZER INC-2013307323

PATIENT
  Age: 36 Year
  Sex: Male
  Weight: 86.2 kg

DRUGS (4)
  1. XANAX [Suspect]
     Indication: ANXIETY
     Dosage: 1 MG, DAILY
  2. LYRICA [Suspect]
     Indication: CYSTITIS INTERSTITIAL
     Dosage: 300 MG, 2X/DAY
     Dates: start: 2008
  3. LORTAB [Suspect]
     Indication: CYSTITIS INTERSTITIAL
     Dosage: 20 MG, 3X/DAY
  4. METHADONE [Suspect]
     Indication: PAIN
     Dosage: 10 MG, 4X/DAY

REACTIONS (5)
  - Off label use [Unknown]
  - Intentional drug misuse [Unknown]
  - Somnolence [Unknown]
  - Dizziness [Unknown]
  - Nausea [Unknown]
